FAERS Safety Report 20932281 (Version 1)
Quarter: 2022Q2

REPORT INFORMATION
  Report Type: Spontaneous
  Country: US (occurrence: None)
  Receive Date: 20220608
  Receipt Date: 20220608
  Transmission Date: 20220721
  Serious: No
  Sender: FDA-Public Use
  Company Number: US-ROCHE-2888248

PATIENT
  Sex: Male
  Weight: 96.702 kg

DRUGS (1)
  1. ACTEMRA [Suspect]
     Active Substance: TOCILIZUMAB
     Indication: Rheumatoid arthritis
     Dosage: 400MG/20ML
     Route: 042
     Dates: start: 20201117

REACTIONS (1)
  - Weight decreased [Unknown]
